FAERS Safety Report 10496561 (Version 1)
Quarter: 2014Q4

REPORT INFORMATION
  Report Type: Spontaneous
  Country: US (occurrence: US)
  Receive Date: 20141005
  Receipt Date: 20141005
  Transmission Date: 20150528
  Serious: Yes (Hospitalization)
  Sender: FDA-Public Use
  Company Number: US-JNJFOC-20141001280

PATIENT
  Age: 79 Year
  Sex: Female
  Weight: 73 kg

DRUGS (11)
  1. IMBRUVICA [Suspect]
     Active Substance: IBRUTINIB
     Indication: CHRONIC LYMPHOCYTIC LEUKAEMIA
     Route: 048
     Dates: start: 20140715, end: 20140903
  2. NASONEX [Concomitant]
     Active Substance: MOMETASONE FUROATE
     Indication: SEASONAL ALLERGY
     Route: 045
  3. LUMIGAN [Concomitant]
     Active Substance: BIMATOPROST
     Indication: OPEN ANGLE GLAUCOMA
     Route: 047
  4. ZOCOR [Concomitant]
     Active Substance: SIMVASTATIN
     Dosage: QHS
     Route: 048
  5. CHOLECALCIFEROL [Concomitant]
     Active Substance: CHOLECALCIFEROL
     Route: 048
  6. TIMOLOL [Concomitant]
     Active Substance: TIMOLOL
     Route: 047
  7. COREG [Concomitant]
     Active Substance: CARVEDILOL
     Route: 048
  8. ASPIRIN. [Concomitant]
     Active Substance: ASPIRIN
     Indication: MYOCARDIAL INFARCTION
     Route: 048
  9. CENTRUM SILVER [Concomitant]
     Active Substance: VITAMINS
  10. AVALIDE [Suspect]
     Active Substance: HYDROCHLOROTHIAZIDE\IRBESARTAN
     Indication: PRODUCT USED FOR UNKNOWN INDICATION
     Dates: end: 20140903
  11. FISH OIL [Concomitant]
     Active Substance: FISH OIL
     Route: 048

REACTIONS (5)
  - Dehydration [Unknown]
  - Cardiac failure congestive [Unknown]
  - Myocardial infarction [Unknown]
  - Atrial fibrillation [Unknown]
  - Acute kidney injury [Recovering/Resolving]

NARRATIVE: CASE EVENT DATE: 20140903
